FAERS Safety Report 5761079-8 (Version None)
Quarter: 2008Q2

REPORT INFORMATION
  Report Type: 
  Country: None (occurrence: None)
  Receive Date: 20080606
  Receipt Date: 20080530
  Transmission Date: 20081010
  Serious: Yes (Death, Hospitalization, Other)
  Sender: FDA-Public Use
  Company Number: US-BAXTER-2008BH005073

PATIENT
  Age: 67 Year
  Sex: Male
  Weight: 53 kg

DRUGS (3)
  1. GAMMAGARD S/D [Suspect]
     Indication: CHRONIC INFLAMMATORY DEMYELINATING POLYRADICULONEUROPATHY
     Route: 042
     Dates: start: 19900101, end: 20080201
  2. BENADRYL [Concomitant]
     Indication: DRUG USE FOR UNKNOWN INDICATION
     Dosage: DOSE UNIT:UNKNOWN
     Route: 065
  3. DETROL [Concomitant]
     Indication: URINARY INCONTINENCE
     Dosage: DOSE UNIT:UNKNOWN
     Route: 065

REACTIONS (3)
  - INTESTINAL OBSTRUCTION [None]
  - SUBDURAL HAEMATOMA [None]
  - WEIGHT DECREASED [None]
